FAERS Safety Report 15199767 (Version 1)
Quarter: 2018Q3

REPORT INFORMATION
  Report Type: Spontaneous
  Country: US (occurrence: US)
  Receive Date: 20180725
  Receipt Date: 20180725
  Transmission Date: 20181010
  Serious: No
  Sender: FDA-Public Use
  Company Number: US-GALDERMA-US18021726

PATIENT
  Age: 28 Year
  Sex: Male

DRUGS (3)
  1. PROACTIV MD ADAPALENE ACNE TREATMENT [Suspect]
     Active Substance: ADAPALENE
     Indication: ACNE
     Dosage: 0.1%
     Route: 061
     Dates: start: 20180313
  2. PROACTIV EMERGENCY BLEMISH RELIEF [Concomitant]
     Active Substance: BENZOYL PEROXIDE
     Route: 061
     Dates: start: 20180208, end: 20180405
  3. PROACTIV CLEANSING BAR [Concomitant]
     Indication: ACNE
     Route: 061
     Dates: start: 20180313

REACTIONS (3)
  - Acne [Not Recovered/Not Resolved]
  - Skin burning sensation [Not Recovered/Not Resolved]
  - Erythema [Not Recovered/Not Resolved]

NARRATIVE: CASE EVENT DATE: 20180328
